FAERS Safety Report 5188308-6 (Version None)
Quarter: 2006Q4

REPORT INFORMATION
  Report Type: 
  Country: None (occurrence: None)
  Receive Date: 20061221
  Receipt Date: 20061212
  Transmission Date: 20070319
  Serious: Yes (Hospitalization)
  Sender: FDA-Public Use
  Company Number: ES-ROCHE-475081

PATIENT
  Age: 66 Year
  Sex: Female

DRUGS (1)
  1. XELODA [Suspect]
     Dosage: FORM REPORTED AS 'COATED TABS'.
     Route: 048
     Dates: start: 20060302, end: 20060314

REACTIONS (1)
  - RASH MACULO-PAPULAR [None]
